FAERS Safety Report 7331626-3 (Version None)
Quarter: 2011Q1

REPORT INFORMATION
  Report Type: 
  Country: None (occurrence: None)
  Receive Date: 20110228
  Receipt Date: 20110228
  Transmission Date: 20110831
  Serious: Yes (Other)
  Sender: FDA-Public Use
  Company Number: None

PATIENT
  Sex: Female
  Weight: 68.2 kg

DRUGS (3)
  1. BONIVA [Suspect]
     Indication: OSTEOPOROSIS
     Dosage: 150 MG. 1 PER MONTH ORAL
     Route: 048
     Dates: start: 20100907, end: 20110107
  2. FOSAMAX [Concomitant]
  3. ACTONEL [Concomitant]

REACTIONS (17)
  - PLANTAR FASCIITIS [None]
  - EXOSTOSIS [None]
  - PAIN IN JAW [None]
  - LYMPHADENOPATHY [None]
  - GINGIVAL PAIN [None]
  - MUSCULOSKELETAL STIFFNESS [None]
  - SWOLLEN TONGUE [None]
  - INFLAMMATION [None]
  - MIDDLE INSOMNIA [None]
  - CHILLS [None]
  - BONE DENSITY DECREASED [None]
  - EYE SWELLING [None]
  - PAIN IN EXTREMITY [None]
  - ASTHENIA [None]
  - ARTHRALGIA [None]
  - TREMOR [None]
  - TOOTHACHE [None]
